FAERS Safety Report 6712116-5 (Version None)
Quarter: 2010Q2

REPORT INFORMATION
  Report Type: 
  Country: None (occurrence: None)
  Receive Date: 20100505
  Receipt Date: 20100406
  Transmission Date: 20101027
  Serious: Yes (Death, Hospitalization)
  Sender: FDA-Public Use
  Company Number: FR-PFIZER INC-2009254276

PATIENT
  Age: 73 Year
  Sex: Female
  Weight: 54.1 kg

DRUGS (17)
  1. AMLOR [Suspect]
  2. TENORMIN [Suspect]
     Dosage: UNK
     Dates: start: 20081201
  3. AMIODARONE [Suspect]
  4. LASIX [Suspect]
     Dosage: UNK
     Dates: end: 20081201
  5. EVEROLIMUS [Concomitant]
     Indication: RENAL TRANSPLANT
     Dosage: 0.5 MG, 2X/DAY
  6. NEORAL [Concomitant]
     Dosage: UNK
     Dates: start: 20080228
  7. NEXIUM [Concomitant]
  8. OROCAL VITAMIN D [Concomitant]
  9. IMOVANE [Concomitant]
  10. LEVOTHYROX [Concomitant]
  11. ARANESP [Concomitant]
  12. AUGMENTIN '125' [Concomitant]
  13. ARTELAC [Concomitant]
  14. RIVOTRIL [Concomitant]
  15. TAHOR [Concomitant]
  16. PARACETAMOL [Concomitant]
  17. TRAMADOL [Concomitant]

REACTIONS (7)
  - DEATH [None]
  - DIZZINESS [None]
  - FALL [None]
  - ISCHAEMIC CEREBRAL INFARCTION [None]
  - ORTHOSTATIC HYPOTENSION [None]
  - URINARY TRACT INFECTION [None]
  - WRIST FRACTURE [None]
